FAERS Safety Report 9057430 (Version 2)
Quarter: 2013Q2

REPORT INFORMATION
  Report Type: Spontaneous
  Country: US (occurrence: US)
  Receive Date: 20130204
  Receipt Date: 20130521
  Transmission Date: 20140414
  Serious: Yes (Hospitalization)
  Sender: FDA-Public Use
  Company Number: US-B.I. PHARMACEUTICALS,INC./RIDGEFIELD-2013-BI-02412BP

PATIENT
  Age: 80 Year
  Sex: Male
  Weight: 84.37 kg

DRUGS (5)
  1. PRADAXA [Suspect]
     Indication: ANTICOAGULANT THERAPY
     Dates: start: 20110121, end: 20120216
  2. DIGOXIN [Concomitant]
     Dates: start: 20080407
  3. LASIX (FUROSEMIDE) [Concomitant]
     Dates: start: 20071105
  4. COREG (CARVEDILOL) [Concomitant]
     Dates: start: 20101217, end: 201303
  5. TYLENOL [Concomitant]

REACTIONS (1)
  - Gastrointestinal haemorrhage [Unknown]
